FAERS Safety Report 15760691 (Version 14)
Quarter: 2020Q3

REPORT INFORMATION
  Report Type: Spontaneous
  Country: US (occurrence: US)
  Receive Date: 20181226
  Receipt Date: 20200715
  Transmission Date: 20201102
  Serious: Yes (Other)
  Sender: FDA-Public Use
  Company Number: US-PFIZER INC-2018314102

PATIENT
  Age: 33 Year
  Sex: Female
  Weight: 79 kg

DRUGS (5)
  1. LYRICA [Suspect]
     Active Substance: PREGABALIN
     Indication: DIABETIC NEUROPATHY
     Dosage: 600 MG, 2X/DAY (TAKE 2 CAPS BY MOUTH 2 TIMES DAILY/ 600 MG IN THE MORNING AND 600 MG IN THE EVENING)
     Route: 048
     Dates: start: 2008
  2. LYRICA [Suspect]
     Active Substance: PREGABALIN
     Dosage: 300 MG, 4X/DAY
  3. LYRICA [Suspect]
     Active Substance: PREGABALIN
     Dosage: 600 MG, 2X/DAY (2 CAPS BY MOUTH 2 TIMES DAILY)
     Route: 048
  4. LYRICA [Suspect]
     Active Substance: PREGABALIN
     Dosage: 600 MG, 2X/DAY (LYRICA 300 MG ORALLY,TAKE 2 CAP TWO TIMES A DAY FOR 90 DAYS )
     Route: 048
  5. LYRICA [Suspect]
     Active Substance: PREGABALIN
     Indication: POLYNEUROPATHY
     Dosage: 1200 MG, DAILY (300MG FOUR PILLS A DAY)
     Route: 048

REACTIONS (3)
  - Drug hypersensitivity [Unknown]
  - Prescribed overdose [Unknown]
  - Limb injury [Unknown]

NARRATIVE: CASE EVENT DATE: 2008
